FAERS Safety Report 5033317-0 (Version None)
Quarter: 2006Q2

REPORT INFORMATION
  Report Type: 
  Country: None (occurrence: None)
  Receive Date: 20060515
  Receipt Date: 20060217
  Transmission Date: 20061013
  Serious: No
  Sender: FDA-Public Use
  Company Number: S06-USA-00634-01

PATIENT
  Age: 64 Year
  Sex: Male

DRUGS (4)
  1. NAMENDA [Suspect]
     Indication: DEMENTIA ALZHEIMER'S TYPE
     Dosage: 5 MG QD PO
     Route: 048
     Dates: start: 20060210, end: 20060215
  2. ARICEPT [Concomitant]
  3. HALOPERIDOL [Concomitant]
  4. ZOCOR [Concomitant]

REACTIONS (1)
  - DIARRHOEA [None]
